FAERS Safety Report 5485548-3 (Version None)
Quarter: 2007Q4

REPORT INFORMATION
  Report Type: 
  Country: None (occurrence: None)
  Receive Date: 20071011
  Receipt Date: 20071011
  Transmission Date: 20080405
  Serious: Yes (Hospitalization)
  Sender: FDA-Public Use
  Company Number: None

PATIENT
  Sex: Male
  Weight: 63 kg

DRUGS (3)
  1. CYTARABINE [Suspect]
     Dosage: 3600 MG
  2. DAUNORUBICIN HCL [Suspect]
     Dosage: 270 MG
  3. ETOPOSIDE [Suspect]
     Dosage: 900 MG

REACTIONS (7)
  - ASPERGILLOSIS [None]
  - LUNG CONSOLIDATION [None]
  - MASS [None]
  - PNEUMONIA KLEBSIELLA [None]
  - SEPTIC SHOCK [None]
  - TACHYCARDIA [None]
  - URINE OUTPUT DECREASED [None]
